FAERS Safety Report 6444350-6 (Version None)
Quarter: 2009Q4

REPORT INFORMATION
  Report Type: 
  Country: None (occurrence: None)
  Receive Date: 20091117
  Receipt Date: 20091117
  Transmission Date: 20100525
  Serious: Yes (Other)
  Sender: FDA-Public Use
  Company Number: None

PATIENT
  Age: 9 Year
  Sex: Female
  Weight: 38.7372 kg

DRUGS (1)
  1. XOPENEX [Suspect]
     Indication: ASTHMA
     Dosage: 1 VIAL EVERY 8 HRS +- INHAL
     Route: 055
     Dates: start: 20091109, end: 20091114

REACTIONS (5)
  - ABNORMAL BEHAVIOUR [None]
  - DEPRESSED LEVEL OF CONSCIOUSNESS [None]
  - DISORIENTATION [None]
  - DYSKINESIA [None]
  - INAPPROPRIATE AFFECT [None]
